FAERS Safety Report 15592635 (Version 1)
Quarter: 2018Q4

REPORT INFORMATION
  Report Type: Spontaneous
  Country: US (occurrence: US)
  Receive Date: 20181107
  Receipt Date: 20181107
  Transmission Date: 20190205
  Serious: Yes (Death, Life-Threatening)
  Sender: FDA-Public Use
  Company Number: None

PATIENT
  Age: 93 Year
  Sex: Male

DRUGS (2)
  1. WARFARIN [Suspect]
     Active Substance: WARFARIN
     Indication: ATRIAL FIBRILLATION
  2. ASPIRIN 81 MG [Concomitant]
     Active Substance: ASPIRIN

REACTIONS (3)
  - Subdural haematoma [None]
  - Brain midline shift [None]
  - Unresponsive to stimuli [None]

NARRATIVE: CASE EVENT DATE: 20180209
